FAERS Safety Report 6401497-8 (Version None)
Quarter: 2009Q4

REPORT INFORMATION
  Report Type: 
  Country: None (occurrence: None)
  Receive Date: 20091015
  Receipt Date: 20091013
  Transmission Date: 20100525
  Serious: Yes (Death, Hospitalization)
  Sender: FDA-Public Use
  Company Number: GB-BRISTOL-MYERS SQUIBB COMPANY-14813083

PATIENT
  Age: 64 Year
  Sex: Male

DRUGS (13)
  1. CETUXIMAB [Suspect]
     Indication: ADENOCARCINOMA PANCREAS
     Route: 042
     Dates: start: 20090610, end: 20090709
  2. RADIOTHERAPY [Suspect]
     Indication: ADENOCARCINOMA PANCREAS
  3. TRAMADOL HCL [Concomitant]
  4. PARACETAMOL [Concomitant]
  5. AMLODIPINE [Concomitant]
  6. BENDROFLUAZIDE [Concomitant]
  7. ENALAPRIL MALEATE [Concomitant]
  8. LOSARTAN POSTASSIUM [Concomitant]
  9. LANSOPRAZOLE [Concomitant]
  10. LEVEMIR [Concomitant]
     Dosage: 1 D.F = 12 UNITS IN THE MORNING AND 10 UNITS AT NIGHT
  11. NOVORAPID [Concomitant]
     Dosage: 1 D.F = 2-4 UNITS WITH MEALS IF REQUIRED
  12. TABPHYN [Concomitant]
     Dosage: 1 D.F= 1 TABLET DAILY
  13. CREON [Concomitant]
     Dosage: 1 D.F=40000 UNITS 1-2 WITH SNACKS, 3-4 WITH MEALS, DISCONTINUED IN TERMINAL PHASE OF THE ILLNESS.
     Dates: end: 20090101

REACTIONS (2)
  - GASTROINTESTINAL HAEMORRHAGE [None]
  - MALIGNANT NEOPLASM PROGRESSION [None]
